FAERS Safety Report 7204342-6 (Version None)
Quarter: 2010Q4

REPORT INFORMATION
  Report Type: 
  Country: None (occurrence: None)
  Receive Date: 20101230
  Receipt Date: 20101223
  Transmission Date: 20110411
  Serious: Yes (Hospitalization)
  Sender: FDA-Public Use
  Company Number: US-ROCHE-750352

PATIENT
  Sex: Male
  Weight: 79 kg

DRUGS (7)
  1. BEVACIZUMAB [Suspect]
     Indication: GLIOBLASTOMA
     Route: 065
     Dates: start: 20100722, end: 20101129
  2. ERLOTINIB [Suspect]
     Indication: GLIOBLASTOMA
     Route: 065
     Dates: start: 20100722, end: 20101210
  3. TEMOZOLOMIDE [Suspect]
     Indication: GLIOBLASTOMA
     Dosage: FREQ: 5 DAYS EVERY 28 DAYS
     Route: 065
     Dates: start: 20100713, end: 20101116
  4. PEPCID [Concomitant]
     Dates: start: 20100623
  5. MINOCYCLINE [Concomitant]
     Dates: start: 20100824
  6. MEGACE [Concomitant]
     Dates: start: 20101029
  7. PILOCARPINE [Concomitant]
     Dates: start: 20101029

REACTIONS (3)
  - NEOPLASM PROGRESSION [None]
  - PAIN [None]
  - PERIPHERAL MOTOR NEUROPATHY [None]
